FAERS Safety Report 19444703 (Version 5)
Quarter: 2022Q3

REPORT INFORMATION
  Report Type: Report from Study
  Country: DE (occurrence: DE)
  Receive Date: 20210621
  Receipt Date: 20220907
  Transmission Date: 20221027
  Serious: Yes (Hospitalization, Other)
  Sender: FDA-Public Use
  Company Number: DE-MYLANLABS-2021M1036020

PATIENT
  Age: 78 Year
  Sex: Male

DRUGS (1)
  1. HULIO [Suspect]
     Active Substance: ADALIMUMAB-FKJP
     Indication: Axial spondyloarthritis
     Dosage: 40 MILLIGRAM, Q2W
     Route: 065
     Dates: start: 20200120

REACTIONS (4)
  - Spinal osteoarthritis [Recovered/Resolved]
  - Gastritis [Recovered/Resolved]
  - Diverticulitis [Unknown]
  - Carotid arteriosclerosis [Unknown]

NARRATIVE: CASE EVENT DATE: 20201015
